FAERS Safety Report 8185025-5 (Version None)
Quarter: 2012Q1

REPORT INFORMATION
  Report Type: 
  Country: None (occurrence: None)
  Receive Date: 20120305
  Receipt Date: 20120227
  Transmission Date: 20120608
  Serious: Yes (Other)
  Sender: FDA-Public Use
  Company Number: US-TEVA-325412USA

PATIENT
  Sex: Female

DRUGS (3)
  1. PROPOXYPHENE NAPSYLATE W/ ACETAMINOPHEN [Suspect]
     Indication: PAIN
  2. PROPACET 100 [Suspect]
     Indication: PAIN
  3. PROPOXYPHENE HCL [Suspect]
     Indication: PAIN

REACTIONS (6)
  - VENTRICULAR EXTRASYSTOLES [None]
  - ARRHYTHMIA [None]
  - ATRIAL TACHYCARDIA [None]
  - ATRIAL FLUTTER [None]
  - PALPITATIONS [None]
  - ATRIAL FIBRILLATION [None]
